FAERS Safety Report 4868439-8 (Version None)
Quarter: 2005Q4

REPORT INFORMATION
  Report Type: 
  Country: None (occurrence: None)
  Receive Date: 20051229
  Receipt Date: 20031118
  Transmission Date: 20060501
  Serious: Yes (Other)
  Sender: FDA-Public Use
  Company Number: JP-AVENTIS-200311366JP

PATIENT
  Age: 58 Year
  Sex: Male

DRUGS (4)
  1. AMARYL [Suspect]
     Indication: DIABETES MELLITUS NON-INSULIN-DEPENDENT
     Route: 048
  2. VOGLIBOSE [Concomitant]
  3. NATEGLINIDE [Concomitant]
  4. GLICLAZIDE [Concomitant]

REACTIONS (1)
  - BRADYCARDIA [None]
